FAERS Safety Report 16105120 (Version 1)
Quarter: 2019Q1

REPORT INFORMATION
  Report Type: Spontaneous
  Country: US (occurrence: US)
  Receive Date: 20190219
  Receipt Date: 20190219
  Transmission Date: 20190418
  Serious: Yes (Life-Threatening)
  Sender: FDA-Public Use
  Company Number: None

PATIENT
  Age: 53 Year
  Sex: Male
  Weight: 72.57 kg

DRUGS (10)
  1. MAVYRET [Suspect]
     Active Substance: GLECAPREVIR\PIBRENTASVIR
     Indication: HEPATITIS C
     Dosage: ?          OTHER DOSE:100/40;?
     Route: 048
     Dates: start: 20180620, end: 20180815
  2. CLOZARIL [Suspect]
     Active Substance: CLOZAPINE
     Indication: SCHIZOPHRENIA
     Route: 048
  3. PERMETHRIN (ELIMITE) 5% CREAM [Concomitant]
  4. DOCUSATE SODIUM (COLACE) 100MG [Concomitant]
  5. AMANTADINE (SYMMETREL) 100 MG [Concomitant]
  6. LIPITOR [Concomitant]
     Active Substance: ATORVASTATIN CALCIUM
  7. GLECAPREVIR-PIBRENTASVIR 100-40 MG [Concomitant]
  8. CLOZAPINE (CLOZARIL) 100 MG [Concomitant]
  9. LURASIDONE HCI (LATUDA) 80 MG [Concomitant]
  10. SILVER SULFADIAZINE (SILVADENE) 1% CREAM [Concomitant]

REACTIONS (2)
  - White blood cell count decreased [None]
  - Drug interaction [None]

NARRATIVE: CASE EVENT DATE: 20180823
